FAERS Safety Report 14290746 (Version 9)
Quarter: 2024Q2

REPORT INFORMATION
  Report Type: Spontaneous
  Country: IT (occurrence: IT)
  Receive Date: 20171215
  Receipt Date: 20240523
  Transmission Date: 20240716
  Serious: Yes (Other)
  Sender: FDA-Public Use
  Company Number: None

PATIENT
  Age: 33 Year
  Sex: Male
  Weight: 100 kg

DRUGS (38)
  1. QUETIAPINE [Suspect]
     Active Substance: QUETIAPINE
     Indication: Product used for unknown indication
     Dosage: 1600 MG, 1 TOTAL
     Route: 048
     Dates: start: 20171112, end: 20171112
  2. QUETIAPINE [Suspect]
     Active Substance: QUETIAPINE
     Dosage: 200 MG, 1 TOTAL
     Route: 048
     Dates: start: 20171112, end: 20171112
  3. QUETIAPINE [Suspect]
     Active Substance: QUETIAPINE
     Dosage: 8 DOSAGE FORM,  TOTAL
     Route: 048
     Dates: start: 20171112, end: 20171112
  4. LANSOPRAZOLE [Suspect]
     Active Substance: LANSOPRAZOLE
     Indication: Product used for unknown indication
     Dosage: 60 MG, 1 TOTAL
     Route: 048
     Dates: start: 20171112, end: 20171112
  5. LANSOPRAZOLE [Suspect]
     Active Substance: LANSOPRAZOLE
     Dosage: 15 MILLIGRAM, QD
     Route: 048
     Dates: start: 20171112, end: 20171112
  6. LANSOPRAZOLE [Suspect]
     Active Substance: LANSOPRAZOLE
     Dosage: UNK
     Route: 048
  7. LANSOPRAZOLE [Suspect]
     Active Substance: LANSOPRAZOLE
     Dosage: 4 DOSAGE FORM, TOTAL
     Route: 048
     Dates: start: 20171112, end: 20171112
  8. LANSOPRAZOLE [Suspect]
     Active Substance: LANSOPRAZOLE
     Dosage: 10 DOSAGE FORM, TOTAL
     Route: 048
     Dates: start: 20171112, end: 20171112
  9. LANSOPRAZOLE [Suspect]
     Active Substance: LANSOPRAZOLE
     Dosage: 25 MILLIGRAM
     Route: 048
     Dates: start: 20171112, end: 20171112
  10. LANSOPRAZOLE [Suspect]
     Active Substance: LANSOPRAZOLE
     Dosage: 6 MILLIGRAM
     Route: 048
     Dates: start: 20171112, end: 20171112
  11. LANSOPRAZOLE [Suspect]
     Active Substance: LANSOPRAZOLE
     Dosage: 12 MILLIGRAM
     Route: 048
     Dates: start: 20171112, end: 20171112
  12. LANSOPRAZOLE [Suspect]
     Active Substance: LANSOPRAZOLE
     Dosage: 2 MILLIGRAM, QD
     Route: 048
     Dates: start: 20171112, end: 20171112
  13. LANSOPRAZOLE [Suspect]
     Active Substance: LANSOPRAZOLE
     Dosage: 20 MILLIGRAM, QD
     Route: 048
     Dates: start: 20171112, end: 20171112
  14. LANSOPRAZOLE [Suspect]
     Active Substance: LANSOPRAZOLE
     Dosage: 2.5 MILLIGRAM, QD
     Route: 048
     Dates: start: 20171112, end: 20171112
  15. LORAZEPAM [Suspect]
     Active Substance: LORAZEPAM
     Indication: Product used for unknown indication
     Dosage: 25 MG, 1 TOTAL
     Route: 048
     Dates: start: 20171112, end: 20171112
  16. LORAZEPAM [Suspect]
     Active Substance: LORAZEPAM
     Dosage: 2.5 MILLIGRAM, TOTAL
     Route: 048
     Dates: start: 20171112, end: 20171112
  17. LORAZEPAM [Suspect]
     Active Substance: LORAZEPAM
     Dosage: UNK
     Route: 048
  18. LORAZEPAM [Suspect]
     Active Substance: LORAZEPAM
     Dosage: 12 MG
     Route: 048
     Dates: start: 20171112, end: 20171112
  19. LORAZEPAM [Suspect]
     Active Substance: LORAZEPAM
     Dosage: 10 DOSAGE FORM, TOTAL
     Route: 048
     Dates: start: 20171112, end: 20171112
  20. LORAZEPAM [Suspect]
     Active Substance: LORAZEPAM
     Dosage: 6 DOSAGE FORM TOTAL
     Route: 048
     Dates: start: 20171112, end: 20171112
  21. RISPERDAL [Suspect]
     Active Substance: RISPERIDONE
     Indication: Product used for unknown indication
     Dosage: 6 MG,1  TOTAL
     Route: 048
     Dates: start: 20171112, end: 20171112
  22. RISPERDAL [Suspect]
     Active Substance: RISPERIDONE
     Dosage: 2 MG, 1 TOTAL
     Route: 048
     Dates: start: 20171112, end: 20171112
  23. RISPERDAL [Suspect]
     Active Substance: RISPERIDONE
     Dosage: UNK
     Route: 048
  24. RISPERDAL [Suspect]
     Active Substance: RISPERIDONE
     Dosage: 3 DOSAGE FORM, TOTAL
     Route: 048
     Dates: start: 20171112, end: 20171112
  25. AKINETON [Suspect]
     Active Substance: BIPERIDEN HYDROCHLORIDE
     Indication: Product used for unknown indication
     Dosage: 40 MG, 1 TOTAL
     Route: 048
     Dates: start: 20171112, end: 20171112
  26. AKINETON [Suspect]
     Active Substance: BIPERIDEN HYDROCHLORIDE
     Dosage: 4 MG, 1 TOTAL
     Route: 048
     Dates: start: 20171112, end: 20171112
  27. AKINETON [Suspect]
     Active Substance: BIPERIDEN HYDROCHLORIDE
     Dosage: UNK
     Route: 048
  28. AKINETON [Suspect]
     Active Substance: BIPERIDEN HYDROCHLORIDE
     Dosage: 10 DOSAGE FORM, TOTAL
     Route: 048
     Dates: start: 20171112, end: 20171112
  29. HALDOL [Suspect]
     Active Substance: HALOPERIDOL
     Indication: Product used for unknown indication
     Dosage: 4 MG, 1 TOTAL
     Route: 048
     Dates: start: 20171112, end: 20171112
  30. HALDOL [Suspect]
     Active Substance: HALOPERIDOL
     Dosage: 1 MILLIGRAM, QD
     Route: 048
     Dates: start: 20171112, end: 20171112
  31. HALDOL [Suspect]
     Active Substance: HALOPERIDOL
     Dosage: UNK
     Route: 048
  32. HALDOL [Suspect]
     Active Substance: HALOPERIDOL
     Dosage: 4 DOSAGE FORM
     Route: 048
     Dates: start: 20171112, end: 20171112
  33. LORMETAZEPAM [Suspect]
     Active Substance: LORMETAZEPAM
     Indication: Product used for unknown indication
     Dosage: 12 MG, 1 TOTAL
     Route: 048
     Dates: start: 20171112, end: 20171112
  34. LORMETAZEPAM [Suspect]
     Active Substance: LORMETAZEPAM
     Dosage: 2 MG, 1 TOTAL
     Route: 048
     Dates: start: 20171112, end: 20171112
  35. LORMETAZEPAM [Suspect]
     Active Substance: LORMETAZEPAM
     Dosage: UNK
     Route: 048
  36. LORMETAZEPAM [Suspect]
     Active Substance: LORMETAZEPAM
     Dosage: 26 DOSAGE FORM, TOTAL
     Route: 048
     Dates: start: 20171112, end: 20171112
  37. ZUCLOPENTHIXOL HYDROCHLORIDE [Suspect]
     Active Substance: ZUCLOPENTHIXOL HYDROCHLORIDE
     Indication: Product used for unknown indication
     Dosage: 20 MILLIGRAM, QD (10 MILLIGRAM. 0.5 TOTAL)
     Route: 048
     Dates: start: 20171112, end: 20171112
  38. QUETIAPINE [Suspect]
     Active Substance: QUETIAPINE
     Indication: Product used for unknown indication
     Dosage: 8 DOSAGE FORM, TOTAL
     Route: 048
     Dates: start: 20171112, end: 20171112

REACTIONS (3)
  - Self-destructive behaviour [Unknown]
  - Intentional product misuse [Unknown]
  - Self-injurious ideation [Unknown]

NARRATIVE: CASE EVENT DATE: 20171112
